FAERS Safety Report 8890510 (Version 1)
Quarter: 2012Q4

REPORT INFORMATION
  Report Type: 
  Country: BR (occurrence: BR)
  Receive Date: 20121107
  Receipt Date: 20121107
  Transmission Date: 20130627
  Serious: Yes (Death, Hospitalization)
  Sender: FDA-Public Use
  Company Number: PHHY2012BR101404

PATIENT
  Sex: Female
  Weight: 50 kg

DRUGS (3)
  1. TRILEPTAL [Suspect]
     Indication: PETIT MAL EPILEPSY
     Dosage: 300 mg, QD (1 tablet at night)
     Route: 048
     Dates: start: 201209
  2. CARDIAC THERAPY [Concomitant]
     Indication: BLOOD PRESSURE
     Dosage: UNK UKN, UNK
  3. CARDIAC THERAPY [Concomitant]
     Indication: ARRHYTHMIA

REACTIONS (5)
  - Septic shock [Fatal]
  - Infection [Fatal]
  - Hypotension [Unknown]
  - Dehydration [Unknown]
  - Somnolence [Unknown]
